FAERS Safety Report 5552508-3 (Version None)
Quarter: 2007Q4

REPORT INFORMATION
  Report Type: 
  Country: None (occurrence: None)
  Receive Date: 20071205
  Receipt Date: 20071121
  Transmission Date: 20080405
  Serious: Yes (Hospitalization)
  Sender: FDA-Public Use
  Company Number: B0497107A

PATIENT
  Age: 27 Year
  Sex: Female

DRUGS (5)
  1. BUPROPION HYDROCHLORIDE [Suspect]
     Dosage: PER DAY
  2. CLONAZEPAM [Concomitant]
  3. LAMOTRIGINE [Concomitant]
  4. HYDROCODONE BITARTRATE [Concomitant]
  5. ZOLPIDEM TARTRATE [Concomitant]

REACTIONS (1)
  - GRAND MAL CONVULSION [None]
